FAERS Safety Report 5112442-X (Version None)
Quarter: 2006Q3

REPORT INFORMATION
  Report Type: 
  Country: None (occurrence: None)
  Receive Date: 20060922
  Receipt Date: 20060725
  Transmission Date: 20061208
  Serious: Yes (Hospitalization)
  Sender: FDA-Public Use
  Company Number: HQWYE388126JUL06

PATIENT
  Sex: Female
  Weight: 53 kg

DRUGS (3)
  1. ENBREL [Suspect]
     Indication: RHEUMATOID ARTHRITIS
     Route: 058
     Dates: start: 20050515, end: 20060713
  2. RHEUMATREX [Suspect]
     Route: 065
     Dates: start: 20030130, end: 20050113
  3. RHEUMATREX [Suspect]
     Route: 065
     Dates: start: 20050120

REACTIONS (1)
  - PNEUMOCYSTIS JIROVECI PNEUMONIA [None]
